FAERS Safety Report 15551126 (Version 2)
Quarter: 2018Q4

REPORT INFORMATION
  Report Type: Other
  Country: US (occurrence: US)
  Receive Date: 20181025
  Receipt Date: 20181121
  Transmission Date: 20190205
  Serious: Yes (Other)
  Sender: FDA-Public Use
  Company Number: US-INTERCEPT-PMOCA2018001672

PATIENT

DRUGS (7)
  1. URSODIOL. [Concomitant]
     Active Substance: URSODIOL
     Indication: PRIMARY BILIARY CHOLANGITIS
     Dosage: 900 MG, QD
     Route: 048
  2. XIFAXAN [Concomitant]
     Active Substance: RIFAXIMIN
     Dosage: 550 MG, BID
     Route: 048
     Dates: start: 20180315, end: 20180920
  3. ENULOSE [Concomitant]
     Active Substance: LACTULOSE
     Dosage: 30 ML, BID
     Route: 048
     Dates: start: 20180315, end: 20180918
  4. ALDACTONE [Concomitant]
     Active Substance: SPIRONOLACTONE
     Dosage: 50 UNK, QD
  5. OCALIVA [Suspect]
     Active Substance: OBETICHOLIC ACID
     Indication: PRIMARY BILIARY CHOLANGITIS
     Dosage: 5 MG, 2X/WK
     Route: 048
     Dates: start: 20180315, end: 20180924
  6. LASIX [Concomitant]
     Active Substance: FUROSEMIDE
     Dosage: 20 UNK, BID
  7. COREG [Concomitant]
     Active Substance: CARVEDILOL
     Dosage: 3.125 MG, 2X/WK

REACTIONS (15)
  - Depression [Unknown]
  - Cough [Unknown]
  - Mobility decreased [Unknown]
  - Blood count abnormal [Unknown]
  - Weight increased [Unknown]
  - Arthralgia [Unknown]
  - Ammonia increased [Unknown]
  - Product prescribing error [Unknown]
  - Ascites [Unknown]
  - Regurgitation [Unknown]
  - Hepatic encephalopathy [Unknown]
  - Oesophageal varices haemorrhage [Unknown]
  - Dyspnoea at rest [Unknown]
  - Fatigue [Unknown]
  - Loss of consciousness [Unknown]

NARRATIVE: CASE EVENT DATE: 2017
